FAERS Safety Report 15559011 (Version 1)
Quarter: 2018Q4

REPORT INFORMATION
  Report Type: Report from Study
  Country: None (occurrence: ES)
  Receive Date: 20181029
  Receipt Date: 20181029
  Transmission Date: 20190205
  Serious: Yes (Other)
  Sender: FDA-Public Use
  Company Number: ES-ABBVIE-18S-144-2525174-00

PATIENT
  Age: 68 Year
  Sex: Female
  Weight: 54 kg

DRUGS (1)
  1. DUODOPA [Suspect]
     Active Substance: CARBIDOPA\LEVODOPA
     Indication: PARKINSON^S DISEASE
     Route: 050
     Dates: start: 20150429

REACTIONS (4)
  - Device issue [Unknown]
  - Stoma site haemorrhage [Unknown]
  - Embedded device [Recovered/Resolved]
  - Gastrointestinal stoma complication [Unknown]

NARRATIVE: CASE EVENT DATE: 2018
